FAERS Safety Report 13454809 (Version 4)
Quarter: 2017Q2

REPORT INFORMATION
  Report Type: Spontaneous
  Country: US (occurrence: US)
  Receive Date: 20170418
  Receipt Date: 20170630
  Transmission Date: 20170830
  Serious: Yes (Hospitalization)
  Sender: FDA-Public Use
  Company Number: US-LUNDBECK-DKLU2029167

PATIENT
  Age: 88 Year
  Sex: Male

DRUGS (3)
  1. NORTHERA [Suspect]
     Active Substance: DROXIDOPA
     Route: 048
     Dates: start: 20170322
  2. NORTHERA [Suspect]
     Active Substance: DROXIDOPA
     Indication: AUTONOMIC NEUROPATHY
     Dosage: SCHEDULE C/ TITRATION COMPLETE
     Route: 048
     Dates: start: 20170325
  3. NORTHERA [Suspect]
     Active Substance: DROXIDOPA
     Dosage: FIXED ORDER
     Route: 048

REACTIONS (5)
  - Sleep disorder [Unknown]
  - Back pain [Unknown]
  - Blood pressure increased [Unknown]
  - Fall [Unknown]
  - Spinal operation [Unknown]

NARRATIVE: CASE EVENT DATE: 20170409
